FAERS Safety Report 8264400-4 (Version None)
Quarter: 2012Q2

REPORT INFORMATION
  Report Type: 
  Country: None (occurrence: None)
  Receive Date: 20120406
  Receipt Date: 20120402
  Transmission Date: 20120825
  Serious: Yes (Other)
  Sender: FDA-Public Use
  Company Number: PHHY2011DE89089

PATIENT
  Sex: Female

DRUGS (1)
  1. EXTAVIA [Suspect]
     Indication: MULTIPLE SCLEROSIS
     Dosage: 1 ML, QOD
     Route: 058
     Dates: start: 20100126

REACTIONS (3)
  - HEPATITIS B CORE ANTIGEN POSITIVE [None]
  - HEPATITIS B CORE ANTIBODY POSITIVE [None]
  - HEPATITIS A ANTIBODY POSITIVE [None]
